FAERS Safety Report 4849231-7 (Version None)
Quarter: 2005Q4

REPORT INFORMATION
  Report Type: 
  Country: None (occurrence: None)
  Receive Date: 20051209
  Receipt Date: 20051104
  Transmission Date: 20060501
  Serious: Yes (Hospitalization)
  Sender: FDA-Public Use
  Company Number: US-MERCK-0511USA00842

PATIENT
  Age: 23 Year
  Sex: Male
  Weight: 127 kg

DRUGS (2)
  1. VIOXX [Suspect]
     Indication: PAIN
     Route: 048
  2. VIOXX [Suspect]
     Indication: INFLAMMATION
     Route: 048

REACTIONS (5)
  - EMOTIONAL DISORDER [None]
  - GASTRIC ULCER [None]
  - MYOCARDIAL INFARCTION [None]
  - STRESS [None]
  - ULCER [None]
